FAERS Safety Report 13683590 (Version 1)
Quarter: 2017Q2

REPORT INFORMATION
  Report Type: Report from Study
  Country: None (occurrence: PR)
  Receive Date: 20170623
  Receipt Date: 20170623
  Transmission Date: 20170830
  Serious: Yes (Other)
  Sender: FDA-Public Use
  Company Number: PR-ABBVIE-16K-131-1811770-00

PATIENT
  Age: 47 Year
  Sex: Female

DRUGS (3)
  1. PRILOSEC [Concomitant]
     Active Substance: OMEPRAZOLE MAGNESIUM
     Indication: PRODUCT USED FOR UNKNOWN INDICATION
  2. TRAMADOL HYDROCHLORIDE ACTAVIS [Concomitant]
     Indication: PRODUCT USED FOR UNKNOWN INDICATION
  3. HUMIRA [Suspect]
     Active Substance: ADALIMUMAB
     Indication: CROHN^S DISEASE
     Route: 058
     Dates: start: 20150130, end: 201612

REACTIONS (5)
  - Gastric ulcer [Not Recovered/Not Resolved]
  - Therapeutic response shortened [Unknown]
  - Diarrhoea [Unknown]
  - Abdominal pain [Unknown]
  - Gastric polyps [Unknown]

NARRATIVE: CASE EVENT DATE: 201611
